FAERS Safety Report 7583981-7 (Version None)
Quarter: 2011Q2

REPORT INFORMATION
  Report Type: 
  Country: None (occurrence: None)
  Receive Date: 20110531
  Receipt Date: 20101224
  Transmission Date: 20111010
  Serious: Yes (Hospitalization)
  Sender: FDA-Public Use
  Company Number: 317370

PATIENT
  Sex: Female

DRUGS (1)
  1. VAGIFEM [Suspect]
     Indication: POSTMENOPAUSE

REACTIONS (1)
  - BREAST CANCER [None]
